FAERS Safety Report 8835916 (Version 5)
Quarter: 2013Q3

REPORT INFORMATION
  Report Type: Spontaneous
  Country: US (occurrence: US)
  Receive Date: 20121011
  Receipt Date: 20130814
  Transmission Date: 20140515
  Serious: Yes (Other)
  Sender: FDA-Public Use
  Company Number: US-PFIZER INC-2012251562

PATIENT
  Age: 67 Year
  Sex: Female
  Weight: 104 kg

DRUGS (6)
  1. LYRICA [Suspect]
     Indication: FIBROMYALGIA
     Dosage: 200 MG, 2X/DAY
  2. TYLENOL W/CODEINE NO. 3 [Concomitant]
     Indication: SPONDYLITIS
     Dosage: UNK, AS NEEDED
  3. VITAMIN C [Concomitant]
     Dosage: 500 MG, DAILY
  4. VITAMIN D2 [Concomitant]
     Dosage: 2000 IU, DAILY
  5. IRON [Concomitant]
     Dosage: UNK, DAILY
  6. FOLIC ACID [Concomitant]
     Dosage: 400 MG, DAILY

REACTIONS (2)
  - Arthropathy [Unknown]
  - Dyspnoea [Unknown]
